FAERS Safety Report 8274335-9 (Version None)
Quarter: 2012Q2

REPORT INFORMATION
  Report Type: 
  Country: None (occurrence: None)
  Receive Date: 20120411
  Receipt Date: 20120404
  Transmission Date: 20120825
  Serious: Yes (Other)
  Sender: FDA-Public Use
  Company Number: US-BAYER-201028981NA

PATIENT
  Age: 61 Year
  Sex: Male
  Weight: 119.73 kg

DRUGS (64)
  1. OMNISCAN [Suspect]
     Indication: ABDOMEN SCAN
     Dosage: 20 ML, ONCE
     Route: 042
     Dates: start: 20010730, end: 20010730
  2. IRON [IRON] [Concomitant]
  3. ANTIBIOTICS [Concomitant]
  4. COMPAZINE [Concomitant]
     Dosage: UNK UNK, PRN
  5. ALLOPURINOL [Concomitant]
  6. DECADRON [Concomitant]
  7. MAGNEVIST [Suspect]
     Dosage: 20 ML, ONCE
     Dates: start: 20020508, end: 20020508
  8. PLENDIL [Concomitant]
     Dosage: 5 MG, QD
     Dates: start: 20100206
  9. LEXAPRO [Concomitant]
  10. ROBITUSSIN DM [DEXTROMETHORPHAN HYDROBROMIDE,ETHANOL,GUAIFENESIN] [Concomitant]
  11. PHOSLO [Concomitant]
  12. POTASSIUM CHLORIDE [Concomitant]
  13. NEUPOGEN [Concomitant]
  14. VICODIN [Concomitant]
  15. OMNISCAN [Suspect]
     Dosage: UNK
     Dates: start: 20021126, end: 20021126
  16. PROCRIT [Concomitant]
     Dosage: 400000 U, EVERY WEEK
     Route: 058
  17. NEXIUM [Concomitant]
     Dosage: 40 MG, PRN
     Dates: start: 20020206
  18. POTASSIUM CHLORIDE [Concomitant]
     Dosage: 30 MG, BID
  19. IMIPRAMINE [Concomitant]
     Dosage: 25 MG, QS
     Dates: start: 20020206
  20. GADOLINIUM IN UNSPECIFIED DRUG [Suspect]
     Indication: NUCLEAR MAGNETIC RESONANCE IMAGING BRAIN
     Dosage: UNK
     Dates: start: 20070717, end: 20070717
  21. EPOGEN [Concomitant]
  22. NEPHROVITE [VIT C,VIT H,B5,B12,B9,B3,B6,B2,B1 HCL] [Concomitant]
  23. ROXIN [Concomitant]
  24. COMPAZINE [Concomitant]
  25. MAGNEVIST [Suspect]
     Indication: NUCLEAR MAGNETIC RESONANCE IMAGING BRAIN
     Dosage: UNK
     Dates: start: 20020205, end: 20020205
  26. OMNISCAN [Suspect]
     Indication: NUCLEAR MAGNETIC RESONANCE IMAGING
     Dosage: UNK
     Dates: start: 20010815, end: 20010815
  27. GADOLINIUM IN UNSPECIFIED DRUG [Suspect]
     Indication: NUCLEAR MAGNETIC RESONANCE IMAGING
  28. TPN [Concomitant]
  29. ATIVAN [Concomitant]
  30. ACETAMINOPHEN [Concomitant]
  31. NASACORT AQ [Concomitant]
  32. OMNISCAN [Suspect]
     Indication: SLEEP APNOEA SYNDROME
     Dosage: UNK
     Route: 042
     Dates: start: 20001016, end: 20001016
  33. OMNISCAN [Suspect]
     Dosage: UNK
     Dates: start: 20020815, end: 20020815
  34. PROHANCE [Suspect]
     Indication: IMAGING PROCEDURE
  35. LASIX [Concomitant]
     Dosage: 80 MG, QD
  36. AVAPRO [Concomitant]
     Dosage: 10 MG, QD
     Dates: start: 20020206
  37. RHINOCORT [Concomitant]
  38. LEVAQUIN [Concomitant]
  39. IMIPRAMINE [Concomitant]
  40. OMNISCAN [Suspect]
     Indication: NUCLEAR MAGNETIC RESONANCE IMAGING BRAIN
     Dosage: UNK
     Dates: start: 19991206, end: 19991206
  41. OMNISCAN [Suspect]
     Indication: HEADACHE
     Dosage: UNK
     Dates: start: 20011211, end: 20011211
  42. MULTIHANCE [Suspect]
     Indication: IMAGING PROCEDURE
  43. MULTI-VITAMINS [Concomitant]
  44. MELPHALAN HYDROCHLORIDE [Concomitant]
     Dosage: 25 MG, QD
  45. ZOFRAN [Concomitant]
  46. NEPHRO-VITE [VITAMINS NOS] [Concomitant]
  47. URECHOLINE [Concomitant]
  48. REGLAN [Concomitant]
  49. ANTIHYPERTENSIVES [Concomitant]
  50. PREDNISONE TAB [Concomitant]
     Dosage: 120 MG, QD
  51. ZAROXOLYN [Concomitant]
     Dosage: 10 MG, QD
     Dates: start: 20020206
  52. ATENOLOL [Concomitant]
  53. ALBUTEROL [Concomitant]
  54. ASTELIN [Concomitant]
  55. TERAZOSIN HCL [Concomitant]
  56. HYTRIN [Concomitant]
  57. LOMOTIL [Concomitant]
  58. PHENERGAN [Concomitant]
  59. OMNISCAN [Suspect]
     Indication: BRAIN STEM SYNDROME
     Dosage: UNK
     Route: 042
     Dates: start: 20010227, end: 20010227
  60. OMNISCAN [Suspect]
     Dosage: UNK
     Dates: start: 20100227, end: 20100227
  61. OPTIMARK [Suspect]
     Indication: NUCLEAR MAGNETIC RESONANCE IMAGING
     Dosage: UNK
     Dates: start: 20040923, end: 20040923
  62. METOLAZONE [Concomitant]
  63. PROBIATA [Concomitant]
  64. RENACAL [Concomitant]

REACTIONS (17)
  - RASH MACULO-PAPULAR [None]
  - HYPOAESTHESIA [None]
  - JOINT SWELLING [None]
  - NECK PAIN [None]
  - BACK PAIN [None]
  - JOINT STIFFNESS [None]
  - JOINT RANGE OF MOTION DECREASED [None]
  - PRURITUS GENERALISED [None]
  - SKIN INDURATION [None]
  - OEDEMA [None]
  - MOBILITY DECREASED [None]
  - OEDEMA PERIPHERAL [None]
  - PAIN IN EXTREMITY [None]
  - DRY SKIN [None]
  - DEPRESSION [None]
  - NEPHROGENIC SYSTEMIC FIBROSIS [None]
  - SKIN DISCOLOURATION [None]
